FAERS Safety Report 9321259 (Version 1)
Quarter: 2013Q2

REPORT INFORMATION
  Report Type: Spontaneous
  Country: DE (occurrence: None)
  Receive Date: 20130528
  Receipt Date: 20130528
  Transmission Date: 20140414
  Serious: Yes (Other)
  Sender: FDA-Public Use
  Company Number: GER/GER/13/0029584

PATIENT
  Age: 38 Year
  Sex: Female

DRUGS (4)
  1. VENLAFAXINE (VENLAFAXINE) [Suspect]
     Indication: BIPOLAR DISORDER
     Dosage: 1 D
     Route: 048
     Dates: start: 20111102, end: 20120727
  2. QUILONORM [Suspect]
     Indication: BIPOLAR DISORDER
     Route: 048
     Dates: start: 20111102, end: 201205
  3. SEROQUEL [Suspect]
     Indication: BIPOLAR DISORDER
     Dosage: 1 D
     Route: 048
     Dates: start: 20111102, end: 20120727
  4. FOLSAURE [Suspect]
     Indication: PROPHYLAXIS OF NEURAL TUBE DEFECT
     Dosage: 1 D
     Route: 048
     Dates: start: 20111102, end: 20120727

REACTIONS (5)
  - Polyhydramnios [None]
  - Gestational diabetes [None]
  - Caesarean section [None]
  - Breech presentation [None]
  - Exposure during pregnancy [None]
